FAERS Safety Report 26140849 (Version 1)
Quarter: 2025Q4

REPORT INFORMATION
  Report Type: Spontaneous
  Country: AU (occurrence: AU)
  Receive Date: 20251210
  Receipt Date: 20251210
  Transmission Date: 20260119
  Serious: Yes (Hospitalization)
  Sender: PFIZER
  Company Number: AU-MLMSERVICE-20251125-PI723119-00270-1

PATIENT
  Age: 3 Decade
  Sex: Female

DRUGS (2)
  1. METHYLPREDNISOLONE SODIUM SUCCINATE [Suspect]
     Active Substance: METHYLPREDNISOLONE SODIUM SUCCINATE
     Indication: Focal segmental glomerulosclerosis
     Dosage: 500 MG, DAILY
     Route: 042
  2. PREDNISOLONE [Suspect]
     Active Substance: PREDNISOLONE
     Indication: Focal segmental glomerulosclerosis
     Dosage: 60 MG, DAILY

REACTIONS (3)
  - Suicide attempt [Unknown]
  - Hypomania [Unknown]
  - Off label use [Unknown]
